FAERS Safety Report 5056039-9 (Version None)
Quarter: 2006Q3

REPORT INFORMATION
  Report Type: 
  Country: None (occurrence: None)
  Receive Date: 20060717
  Receipt Date: 20060701
  Transmission Date: 20061208
  Serious: Yes (Life-Threatening, Other)
  Sender: FDA-Public Use
  Company Number: 163-20785-06070201

PATIENT

DRUGS (1)
  1. THALOMID [Suspect]
     Indication: ENDOMETRIAL CANCER
     Dosage: QHS (CYCLE = 28 DAYS);INITIAL DOSE 200 MG, 200 MG INCREMENTS Q2WKS TO A MAXIMUM OF 1000MG/DAY, ORAL
     Route: 048
     Dates: start: 20020503, end: 20030327

REACTIONS (11)
  - ABDOMINAL PAIN [None]
  - BLOOD BILIRUBIN INCREASED [None]
  - CANCER PAIN [None]
  - CONSTIPATION [None]
  - FATIGUE [None]
  - HAEMOGLOBIN DECREASED [None]
  - HYPERGLYCAEMIA [None]
  - HYPOALBUMINAEMIA [None]
  - HYPOCALCAEMIA [None]
  - HYPOKALAEMIA [None]
  - PERIPHERAL SENSORY NEUROPATHY [None]
